FAERS Safety Report 25231076 (Version 1)
Quarter: 2025Q2

REPORT INFORMATION
  Report Type: Spontaneous
  Country: US (occurrence: None)
  Receive Date: 20250423
  Receipt Date: 20250423
  Transmission Date: 20250716
  Serious: Yes (Hospitalization)
  Sender: FDA-CTU
  Company Number: None

PATIENT
  Age: 46 Year
  Sex: Female
  Weight: 63 kg

DRUGS (1)
  1. FERAHEME [Suspect]
     Active Substance: FERUMOXYTOL NON-STOICHIOMETRIC MAGNETITE
     Indication: Blood iron decreased
     Route: 042
     Dates: start: 20250411, end: 20250411

REACTIONS (4)
  - Feeling abnormal [None]
  - Dizziness [None]
  - Nausea [None]
  - Vertigo [None]

NARRATIVE: CASE EVENT DATE: 20250411
